FAERS Safety Report 8800773 (Version 2)
Quarter: 2012Q4

REPORT INFORMATION
  Report Type: 
  Country: US (occurrence: US)
  Receive Date: 20120921
  Receipt Date: 20121019
  Transmission Date: 20130627
  Serious: Yes (Hospitalization)
  Sender: FDA-Public Use
  Company Number: US-ACTELION-A-US2012-71539

PATIENT
  Age: 60 Year
  Sex: Male

DRUGS (1)
  1. TRACLEER [Suspect]
     Indication: PULMONARY ARTERIAL HYPERTENSION
     Route: 048

REACTIONS (4)
  - Hiatus hernia [Recovering/Resolving]
  - Pulmonary fibrosis [Unknown]
  - Hernia hiatus repair [Recovering/Resolving]
  - Gastrooesophageal reflux disease [Recovering/Resolving]
